FAERS Safety Report 5766703-1 (Version None)
Quarter: 2008Q2

REPORT INFORMATION
  Report Type: 
  Country: None (occurrence: None)
  Receive Date: 20080609
  Receipt Date: 20080528
  Transmission Date: 20081010
  Serious: Yes (Death)
  Sender: FDA-Public Use
  Company Number: 235039J08USA

PATIENT
  Age: 49 Year
  Sex: Male
  Weight: 122.4712 kg

DRUGS (5)
  1. REBIF [Suspect]
     Indication: MULTIPLE SCLEROSIS
     Dosage: 44 MCG, 3 IN 1 WEEKS, SUBCUTANEOUS
     Route: 058
     Dates: start: 20030523, end: 20051012
  2. OXYCONTIN (OXYCOCONE HYDROCHLORIDE) [Concomitant]
  3. VALIUM [Concomitant]
  4. DURAGESIC-100 [Concomitant]
  5. UNSPECIFIED MEDICATIONS (ALL OTHER THERAPEUTIC PRODUCTS) [Concomitant]

REACTIONS (1)
  - ASPIRATION [None]
